FAERS Safety Report 5262128-6 (Version None)
Quarter: 2007Q1

REPORT INFORMATION
  Report Type: 
  Country: None (occurrence: None)
  Receive Date: 20070311
  Receipt Date: 20070228
  Transmission Date: 20070707
  Serious: Yes (Hospitalization)
  Sender: FDA-Public Use
  Company Number: 2006UW06039

PATIENT
  Age: 52 Year
  Sex: Female
  Weight: 97.7 kg

DRUGS (6)
  1. SEROQUEL [Suspect]
     Indication: BIPOLAR DISORDER
     Route: 048
     Dates: start: 20010101, end: 20050101
  2. ZYPREXA [Concomitant]
     Dosage: 10 TO 20 MG TABLET
     Route: 048
     Dates: start: 20020101, end: 20030101
  3. ABILIFY [Concomitant]
     Dates: start: 20050101
  4. STELAZINE [Concomitant]
  5. EFFEXOR XR [Concomitant]
     Dates: start: 20040101
  6. TRAZODONE HCL [Concomitant]
     Dates: start: 20060101

REACTIONS (5)
  - ARTHRITIS [None]
  - DIABETES MELLITUS [None]
  - GALLBLADDER DISORDER [None]
  - HYPERLIPIDAEMIA [None]
  - JOINT SWELLING [None]
